FAERS Safety Report 23105389 (Version 2)
Quarter: 2025Q3

REPORT INFORMATION
  Report Type: Report from Study
  Country: CN (occurrence: CN)
  Receive Date: 20231025
  Receipt Date: 20250822
  Transmission Date: 20251021
  Serious: Yes (Hospitalization, Other)
  Sender: EISAI
  Company Number: CN-Eisai-EC-2023-151210

PATIENT
  Age: 39 Year
  Sex: Male

DRUGS (9)
  1. LENVATINIB [Suspect]
     Active Substance: LENVATINIB
     Indication: Hepatocellular carcinoma
     Dates: start: 20230607, end: 2023
  2. LENVATINIB [Suspect]
     Active Substance: LENVATINIB
     Dates: start: 20230918, end: 20250417
  3. VOLRUSTOMIG [Suspect]
     Active Substance: VOLRUSTOMIG
     Indication: Hepatocellular carcinoma
     Dates: start: 20230607, end: 2023
  4. ENTECAVIR [Concomitant]
     Active Substance: ENTECAVIR
  5. TENOFOVIR ALAFENAMIDE FUMARATE [Concomitant]
     Active Substance: TENOFOVIR ALAFENAMIDE FUMARATE
  6. COMPOUND GLYCYRRHIZIN [Concomitant]
  7. GLUTATHIONE [Concomitant]
     Active Substance: GLUTATHIONE
  8. BICYCLOL [Concomitant]
     Active Substance: BICYCLOL
  9. OLMESARTAN MEDOXOMIL [Concomitant]
     Active Substance: OLMESARTAN MEDOXOMIL

REACTIONS (1)
  - Drug-induced liver injury [Recovered/Resolved]

NARRATIVE: CASE EVENT DATE: 20230822
